FAERS Safety Report 5131437-3 (Version None)
Quarter: 2006Q4

REPORT INFORMATION
  Report Type: 
  Country: None (occurrence: None)
  Receive Date: 20061016
  Receipt Date: 20061002
  Transmission Date: 20070319
  Serious: Yes (Death, Other)
  Sender: FDA-Public Use
  Company Number: 2006BH013693

PATIENT
  Age: 68 Year
  Sex: Male
  Weight: 103.8737 kg

DRUGS (21)
  1. SUPRANE [Suspect]
     Indication: ANAESTHESIA
     Dosage: 6.0 PCT; CONTINUOUS; INH
     Route: 055
     Dates: start: 20060831, end: 20060831
  2. NPH INSULIN [Concomitant]
  3. DILTIAZEM HCL [Concomitant]
  4. LISINOPRIL [Concomitant]
  5. AVANDIA [Concomitant]
  6. LORTAB [Concomitant]
  7. LEUKINE [Concomitant]
  8. PROCRIT [Concomitant]
  9. ALBUTEROL [Concomitant]
  10. ATROVENT [Concomitant]
  11. CEFAZOLIN [Concomitant]
  12. MORPHINE SULFATE [Concomitant]
  13. SUCCINYLCHOLINE CHLORIDE [Concomitant]
  14. PROPOFOL [Concomitant]
  15. VERSED [Concomitant]
  16. FENTANYL [Concomitant]
  17. MORPHINE SULFATE [Concomitant]
  18. ROBINUL [Concomitant]
  19. NEOSTIGMINE [Concomitant]
  20. BLOOD CELLS, PACKED HUMAN [Concomitant]
  21. FRESH FROZEN PLASMA [Concomitant]

REACTIONS (4)
  - HEPATIC ENCEPHALOPATHY [None]
  - HEPATIC FAILURE [None]
  - POST PROCEDURAL COMPLICATION [None]
  - RENAL FAILURE [None]
